FAERS Safety Report 6424759-7 (Version None)
Quarter: 2009Q4

REPORT INFORMATION
  Report Type: 
  Country: None (occurrence: None)
  Receive Date: 20091029
  Receipt Date: 20081217
  Transmission Date: 20100525
  Serious: Yes (Hospitalization)
  Sender: FDA-Public Use
  Company Number: 182941USA

PATIENT
  Age: 56 Year
  Sex: Female

DRUGS (3)
  1. CLONAZEPAM [Suspect]
     Indication: RESTLESS LEGS SYNDROME
     Dosage: 0.5 MG (0.5 MG, 1 IN 1 D), ORAL
     Route: 048
     Dates: start: 20060301, end: 20080901
  2. NAPROXEN [Concomitant]
  3. RANITIDINE [Concomitant]

REACTIONS (2)
  - FALL [None]
  - UPPER LIMB FRACTURE [None]
